FAERS Safety Report 16460079 (Version 1)
Quarter: 2019Q2

REPORT INFORMATION
  Report Type: Report from Study
  Country: US (occurrence: US)
  Receive Date: 20190620
  Receipt Date: 20190620
  Transmission Date: 20190711
  Serious: Yes (Death)
  Sender: FDA-Public Use
  Company Number: US-BAYER-2019-083894

PATIENT
  Age: 31 Year
  Sex: Female

DRUGS (4)
  1. BETASERON [Suspect]
     Active Substance: INTERFERON BETA-1B
     Indication: PROGRESSIVE MULTIPLE SCLEROSIS
     Dosage: 6 MIU, QOD
     Route: 058
     Dates: start: 20190306
  2. GABAPENTIN. [Concomitant]
     Active Substance: GABAPENTIN
     Dosage: UNK
  3. BETASERON [Suspect]
     Active Substance: INTERFERON BETA-1B
     Indication: PROGRESSIVE MULTIPLE SCLEROSIS
     Dosage: 0.3 MG
     Route: 058
     Dates: start: 201905
  4. BETASERON [Suspect]
     Active Substance: INTERFERON BETA-1B
     Indication: PROGRESSIVE MULTIPLE SCLEROSIS
     Dosage: 8 UNK
     Route: 058
     Dates: start: 20190306, end: 20190612

REACTIONS (3)
  - Product dose omission [Recovered/Resolved]
  - Myalgia [None]
  - Death [Fatal]

NARRATIVE: CASE EVENT DATE: 20190413
